FAERS Safety Report 7458474-8 (Version None)
Quarter: 2011Q2

REPORT INFORMATION
  Report Type: 
  Country: None (occurrence: None)
  Receive Date: 20110426
  Receipt Date: 20110411
  Transmission Date: 20111010
  Serious: Yes (Other)
  Sender: FDA-Public Use
  Company Number: 2011-0490

PATIENT
  Age: 29 Year
  Sex: Female

DRUGS (1)
  1. DYSPORT [Suspect]
     Indication: SKIN WRINKLING
     Dosage: 50 UNITS (50 UNITS, SINGLE CYCLE),SUBCUTANEOUS
     Route: 058
     Dates: start: 20110210, end: 20110210

REACTIONS (9)
  - DRUG EFFECT DECREASED [None]
  - NEURALGIA [None]
  - LYMPHADENOPATHY [None]
  - CRYING [None]
  - APHASIA [None]
  - PRODUCT QUALITY ISSUE [None]
  - ANXIETY [None]
  - BURNING SENSATION [None]
  - DYSPNOEA [None]
